FAERS Safety Report 8509534-1 (Version None)
Quarter: 2012Q3

REPORT INFORMATION
  Report Type: 
  Country: None (occurrence: None)
  Receive Date: 20120713
  Receipt Date: 20120705
  Transmission Date: 20120928
  Serious: Yes (Hospitalization)
  Sender: FDA-Public Use
  Company Number: CA-SANOFI-AVENTIS-2012SA048211

PATIENT
  Age: 62 Year
  Sex: Female

DRUGS (10)
  1. TAXOTERE [Suspect]
     Route: 042
  2. NYSTATIN [Concomitant]
  3. RANITIDINE [Concomitant]
  4. CIPROFLOXACIN [Concomitant]
  5. AMILORIDE HCL AND HYDROCHLOROTHIAZIDE [Concomitant]
  6. FENTANYL [Concomitant]
  7. POTASSIUM CHLORIDE [Concomitant]
  8. SKELAXIN [Concomitant]
  9. HYDROCHLOROTHIAZIDE [Concomitant]
  10. ACETAMINOPHEN [Concomitant]

REACTIONS (3)
  - PULMONARY OEDEMA [None]
  - PNEUMONITIS [None]
  - ALVEOLITIS [None]
